FAERS Safety Report 19170310 (Version 2)
Quarter: 2021Q2

REPORT INFORMATION
  Report Type: Spontaneous
  Country: US (occurrence: US)
  Receive Date: 20210422
  Receipt Date: 20210531
  Transmission Date: 20210717
  Serious: Yes (Hospitalization, Other)
  Sender: FDA-Public Use
  Company Number: US-SA-2021SA127188

PATIENT
  Age: 69 Year
  Sex: Male

DRUGS (6)
  1. PLAVIX [Suspect]
     Active Substance: CLOPIDOGREL BISULFATE
     Indication: PRODUCT USED FOR UNKNOWN INDICATION
     Dosage: UNK
     Route: 065
     Dates: start: 20210207, end: 20210210
  2. ACETYLSALICYLIC ACID [Suspect]
     Active Substance: ASPIRIN
     Dosage: USED AROUND 07FEB?10FEB2021
     Dates: start: 20210207, end: 20210210
  3. ELIQUIS [Suspect]
     Active Substance: APIXABAN
     Indication: ATRIAL FIBRILLATION
     Route: 048
  4. ZITHROMAX [Concomitant]
     Active Substance: AZITHROMYCIN DIHYDRATE
     Dosage: UNK (TOOK TWO PILLS THE FIRST DAY, THEN ONE PILL FOR A FEW DAYS)
  5. MUCINEX [Concomitant]
     Active Substance: GUAIFENESIN
     Dosage: UNK
  6. ALBUTEROL SULFATE. [Concomitant]
     Active Substance: ALBUTEROL SULFATE

REACTIONS (13)
  - COVID-19 [Unknown]
  - Heart rate decreased [Not Recovered/Not Resolved]
  - Atrial fibrillation [Unknown]
  - Weight decreased [Unknown]
  - Decreased appetite [Unknown]
  - Skin exfoliation [Unknown]
  - Taste disorder [Unknown]
  - Skin haemorrhage [Unknown]
  - Nausea [Unknown]
  - Limb injury [Unknown]
  - Initial insomnia [Unknown]
  - Fatigue [Unknown]
  - Contraindicated product administered [Unknown]

NARRATIVE: CASE EVENT DATE: 20210210
